FAERS Safety Report 8002537-5 (Version None)
Quarter: 2011Q4

REPORT INFORMATION
  Report Type: 
  Country: None (occurrence: None)
  Receive Date: 20111220
  Receipt Date: 20111208
  Transmission Date: 20120403
  Serious: Yes (Other)
  Sender: FDA-Public Use
  Company Number: 2011P1008666

PATIENT
  Age: 55 Year
  Sex: Female
  Weight: 77.1115 kg

DRUGS (6)
  1. MONOPRIL [Concomitant]
  2. BISMUTH SUBSALICYLATE [Suspect]
     Indication: ABDOMINAL PAIN UPPER
  3. XANAX [Concomitant]
  4. PREDNISONE [Suspect]
     Dates: start: 20110901
  5. TERCONAZOLE [Suspect]
     Indication: VULVOVAGINAL MYCOTIC INFECTION
     Dosage: 1 APPLICATOR;QHS;VAG
     Route: 067
     Dates: start: 20110801, end: 20110801
  6. PRILOSEC [Concomitant]

REACTIONS (21)
  - PRURITUS [None]
  - SKIN TIGHTNESS [None]
  - BONE SWELLING [None]
  - RASH [None]
  - LOCAL SWELLING [None]
  - SWELLING FACE [None]
  - DIARRHOEA [None]
  - SCAR [None]
  - SKIN EXFOLIATION [None]
  - OBSTRUCTIVE AIRWAYS DISORDER [None]
  - BURNS SECOND DEGREE [None]
  - ERYTHEMA [None]
  - COUGH [None]
  - ABDOMINAL PAIN UPPER [None]
  - ANXIETY [None]
  - BLISTER [None]
  - ACNE [None]
  - SOFT TISSUE DISORDER [None]
  - FEELING ABNORMAL [None]
  - DRUG HYPERSENSITIVITY [None]
  - SKIN DISORDER [None]
